FAERS Safety Report 4477743-7 (Version None)
Quarter: 2004Q4

REPORT INFORMATION
  Report Type: 
  Country: None (occurrence: None)
  Receive Date: 20041014
  Receipt Date: 20041001
  Transmission Date: 20050328
  Serious: Yes (Other)
  Sender: FDA-Public Use
  Company Number: 163-20785-04100137

PATIENT

DRUGS (3)
  1. THALIDOMIDE\PLACEBO (CAPSULES) [Suspect]
     Indication: PROSTATE CANCER
     Dosage: SEE IMAGE, ORALLY DAILY
     Route: 048
     Dates: start: 20020311
  2. THALIDOMIDE\PLACEBO (CAPSULES) [Suspect]
     Indication: PROSTATE CANCER
     Dosage: SEE IMAGE, ORALLY DAILY
     Route: 048
     Dates: start: 20030106
  3. LEUPROLIDE (L) OR GOSERELIN (G) [Suspect]
     Indication: PROSTATE CANCER
     Dosage: SEE IMAGE, SC
     Route: 058
     Dates: start: 20020311

REACTIONS (14)
  - ALANINE AMINOTRANSFERASE [None]
  - ASPARTATE AMINOTRANSFERASE [None]
  - CHEST DISCOMFORT [None]
  - CONSTIPATION [None]
  - DEPRESSED LEVEL OF CONSCIOUSNESS [None]
  - DIZZINESS [None]
  - FATIGUE [None]
  - HEADACHE [None]
  - HOT FLUSH [None]
  - HYPERGLYCAEMIA [None]
  - INCONTINENCE [None]
  - PERIPHERAL SENSORY NEUROPATHY [None]
  - RASH [None]
  - SKIN DESQUAMATION [None]
